FAERS Safety Report 14100901 (Version 1)
Quarter: 2017Q4

REPORT INFORMATION
  Report Type: Spontaneous
  Country: US (occurrence: None)
  Receive Date: 20171017
  Receipt Date: 20171017
  Transmission Date: 20180321
  Serious: Yes (Life-Threatening)
  Sender: FDA-Public Use
  Company Number: None

PATIENT
  Age: 78 Year
  Sex: Female
  Weight: 57.15 kg

DRUGS (6)
  1. WARFARIN [Suspect]
     Active Substance: WARFARIN
  2. PROBIOTICS [Concomitant]
     Active Substance: PROBIOTICS NOS
  3. NIACINAMIDE [Concomitant]
     Active Substance: NIACINAMIDE
  4. COQ10 [Concomitant]
     Active Substance: UBIDECARENONE
  5. LEVOTHROID [Suspect]
     Active Substance: LEVOTHYROXINE SODIUM
  6. ELIQUIS [Suspect]
     Active Substance: APIXABAN
     Indication: THROMBOSIS
     Route: 048
     Dates: start: 20170901, end: 20170912

REACTIONS (3)
  - Rectal haemorrhage [None]
  - Somnolence [None]
  - Epistaxis [None]
